FAERS Safety Report 5899197-6 (Version None)
Quarter: 2008Q3

REPORT INFORMATION
  Report Type: 
  Country: None (occurrence: None)
  Receive Date: 20080925
  Receipt Date: 20080910
  Transmission Date: 20090109
  Serious: No
  Sender: FDA-Public Use
  Company Number: US-B.I. PHARMACEUTICALS,INC./RIDGEFIELD-2008-BP-14355BP

PATIENT
  Age: 67 Year
  Sex: Female

DRUGS (3)
  1. ZANTAC 150 [Suspect]
     Indication: DYSPEPSIA
     Dosage: 150MG
     Route: 048
     Dates: start: 20080831
  2. ZANTAC 150 [Suspect]
     Indication: HYPERCHLORHYDRIA
  3. PREMARIN [Concomitant]
     Indication: MENOPAUSE
     Dates: start: 20080810

REACTIONS (3)
  - ABDOMINAL PAIN UPPER [None]
  - PRURITUS [None]
  - URTICARIA [None]
